FAERS Safety Report 8965536 (Version 1)
Quarter: 2012Q4

REPORT INFORMATION
  Report Type: Spontaneous
  Country: DK (occurrence: None)
  Receive Date: 20121205
  Receipt Date: 20121205
  Transmission Date: 20130627
  Serious: Yes (Hospitalization)
  Sender: FDA-Public Use
  Company Number: 2012MA013757

PATIENT
  Age: 52 Year
  Sex: Male

DRUGS (10)
  1. CITALOPRAM HYDROBROMIDE [Suspect]
     Indication: SLEEP DISTURBANCE
     Route: 048
     Dates: start: 20120704, end: 20121115
  2. METFORMIN [Concomitant]
  3. GLICLAZIDE [Concomitant]
  4. SITAGLIPTIN [Concomitant]
  5. FELDOPINE [Concomitant]
  6. EZETIMIBE [Concomitant]
  7. TELMISARTAN [Concomitant]
  8. ACETYLSALICYLIC ACID [Concomitant]
  9. SALBUTAMOL [Concomitant]
  10. ATORVASTATIN [Concomitant]

REACTIONS (4)
  - Lethargy [None]
  - Weight increased [None]
  - Confusional state [None]
  - Blood sodium decreased [None]
